FAERS Safety Report 12209556 (Version 2)
Quarter: 2016Q2

REPORT INFORMATION
  Report Type: Report from Study
  Country: AT (occurrence: AT)
  Receive Date: 20160324
  Receipt Date: 20160525
  Transmission Date: 20160815
  Serious: Yes (Hospitalization)
  Sender: FDA-Public Use
  Company Number: AT-BIOGEN-2014BI114655

PATIENT
  Age: 46 Year
  Sex: Female
  Weight: 55 kg

DRUGS (10)
  1. BG00012 [Suspect]
     Active Substance: DIMETHYL FUMARATE
     Indication: MULTIPLE SCLEROSIS
     Route: 048
     Dates: start: 20140612, end: 20140618
  2. TOLTERODINE TARTRATE. [Concomitant]
     Active Substance: TOLTERODINE TARTRATE
     Indication: INCONTINENCE
     Dates: start: 20100527
  3. PREDNISOLONE. [Concomitant]
     Active Substance: PREDNISOLONE
     Indication: PSORIASIS
     Dates: start: 1995
  4. CITALOPRAM [Concomitant]
     Active Substance: CITALOPRAM HYDROBROMIDE
     Indication: ADJUSTMENT DISORDER WITH DEPRESSED MOOD
     Dates: start: 2000
  5. FUCIDIN CREAM [Concomitant]
     Indication: HYPERKERATOSIS
  6. OPTIDERM [Concomitant]
  7. TRAZODONE HYDROCHLORIDE. [Concomitant]
     Active Substance: TRAZODONE HYDROCHLORIDE
     Indication: ADJUSTMENT DISORDER WITH DEPRESSED MOOD
     Dates: start: 2004
  8. BG00012 [Suspect]
     Active Substance: DIMETHYL FUMARATE
     Route: 048
     Dates: start: 20140619, end: 20141107
  9. PREGABALIN. [Concomitant]
     Active Substance: PREGABALIN
     Indication: PSORIASIS
     Dates: start: 2000
  10. CEFALEXIN [Concomitant]
     Active Substance: CEPHALEXIN
     Indication: SKIN ULCER
     Dates: start: 201406

REACTIONS (1)
  - Lymphoedema [Recovered/Resolved]

NARRATIVE: CASE EVENT DATE: 20140826
